FAERS Safety Report 11748662 (Version 1)
Quarter: 2015Q4

REPORT INFORMATION
  Report Type: Spontaneous
  Country: US (occurrence: US)
  Receive Date: 20151117
  Receipt Date: 20151117
  Transmission Date: 20160304
  Serious: Yes (Other)
  Sender: FDA-Public Use
  Company Number: US-MYLANLABS-2015M1039965

PATIENT

DRUGS (8)
  1. CLONAZEPAM. [Concomitant]
     Active Substance: CLONAZEPAM
     Indication: MAJOR DEPRESSION
     Route: 065
  2. KETAMINE [Suspect]
     Active Substance: KETAMINE
     Dosage: 1 ML, QW
     Route: 050
  3. DOCOSAHEXAENOIC ACID [Concomitant]
     Active Substance: DOCONEXENT
     Indication: MAJOR DEPRESSION
     Route: 065
  4. LISDEXAMFETAMINE [Concomitant]
     Active Substance: LISDEXAMFETAMINE
     Indication: MAJOR DEPRESSION
     Route: 065
  5. HALOPERIDOL. [Concomitant]
     Active Substance: HALOPERIDOL
     Indication: MAJOR DEPRESSION
     Route: 065
  6. KETAMINE [Suspect]
     Active Substance: KETAMINE
     Indication: MAJOR DEPRESSION
     Dosage: 0.35 ML BY MOUTH
     Route: 050
  7. ESCITALOPRAM [Concomitant]
     Active Substance: ESCITALOPRAM OXALATE
     Indication: MAJOR DEPRESSION
     Route: 065
  8. LEVOMEFOLIC ACID [Concomitant]
     Indication: MAJOR DEPRESSION
     Route: 065

REACTIONS (3)
  - Major depression [Unknown]
  - Off label use [Unknown]
  - No adverse event [Recovered/Resolved]
